FAERS Safety Report 4908471-9 (Version None)
Quarter: 2006Q1

REPORT INFORMATION
  Report Type: 
  Country: None (occurrence: None)
  Receive Date: 20060210
  Receipt Date: 20050722
  Transmission Date: 20060701
  Serious: No
  Sender: FDA-Public Use
  Company Number: US-GLAXOSMITHKLINE-A0567276A

PATIENT
  Sex: Male

DRUGS (1)
  1. PAXIL CR [Suspect]
     Indication: DRUG USE FOR UNKNOWN INDICATION
     Route: 048

REACTIONS (6)
  - ABNORMAL DREAMS [None]
  - DIZZINESS [None]
  - FALL [None]
  - INFLUENZA LIKE ILLNESS [None]
  - INSOMNIA [None]
  - TINNITUS [None]
